FAERS Safety Report 23081372 (Version 1)
Quarter: 2023Q4

REPORT INFORMATION
  Report Type: Report from Study
  Country: US (occurrence: US)
  Receive Date: 20231018
  Receipt Date: 20231018
  Transmission Date: 20240110
  Serious: Yes (Other)
  Sender: FDA-Public Use
  Company Number: US-ABBVIE-5454203

PATIENT
  Sex: Male

DRUGS (1)
  1. HUMIRA [Suspect]
     Active Substance: ADALIMUMAB
     Indication: Rheumatoid arthritis
     Dosage: FORM STRENGTH:40 MILLIGRAM?HUMIRA CITRATE FREE PEN
     Route: 058

REACTIONS (3)
  - Renal failure [Unknown]
  - Laboratory test abnormal [Recovered/Resolved]
  - Vitamin C decreased [Unknown]
